FAERS Safety Report 19844355 (Version 2)
Quarter: 2021Q3

REPORT INFORMATION
  Report Type: Spontaneous
  Country: DE (occurrence: DE)
  Receive Date: 20210917
  Receipt Date: 20210922
  Transmission Date: 20211014
  Serious: Yes (Hospitalization, Other)
  Sender: FDA-Public Use
  Company Number: DE-BRISTOL-MYERS SQUIBB COMPANY-BMS-2021-093491

PATIENT
  Age: 93 Year
  Sex: Female
  Weight: 45 kg

DRUGS (29)
  1. HCT [Concomitant]
     Active Substance: HYDROCHLOROTHIAZIDE
     Indication: PRODUCT USED FOR UNKNOWN INDICATION
     Dosage: 25 MILLIGRAM, QD
     Route: 065
  2. TORASEMID AL [Concomitant]
     Active Substance: TORSEMIDE
     Indication: POLYURIA
     Dosage: 15 MILLIGRAM (WHEN WEIGHT CA. 50 KG WITHOUT CLOTHES OR LESS THAN CA. 52 KG WITH CLOTHES)
     Route: 065
  3. ELIQUIS [Suspect]
     Active Substance: APIXABAN
     Indication: CEREBROVASCULAR ACCIDENT PROPHYLAXIS
     Dosage: 2.5 MILLIGRAM, BID
     Route: 048
     Dates: start: 20181213
  4. TOREM [TORASEMIDE] [Concomitant]
     Active Substance: TORSEMIDE
     Indication: PRODUCT USED FOR UNKNOWN INDICATION
     Dosage: 10 MILLIGRAM, QD
     Route: 065
  5. PANTOPRAZOL RATIOPHARM [Concomitant]
     Active Substance: PANTOPRAZOLE SODIUM
     Indication: PRODUCT USED FOR UNKNOWN INDICATION
     Dosage: 40 MILLIGRAM, BID FOR 3 WEEKS
     Route: 065
  6. CLARITHROMYCIN HEXAL [Concomitant]
     Active Substance: CLARITHROMYCIN
     Indication: PRODUCT USED FOR UNKNOWN INDICATION
     Dosage: 500 MILLIGRAM, BID
     Route: 065
  7. HAWTHORN [CRATAEGUS LAEVIGATA] [Concomitant]
     Indication: CARDIAC DISORDER
     Dosage: 1 TABLESPOON, BID
     Route: 065
  8. POTASSIUM [Concomitant]
     Active Substance: POTASSIUM
     Indication: PRODUCT USED FOR UNKNOWN INDICATION
     Dosage: UNK UNK, TID
     Route: 065
  9. THIAMAZOLE [Concomitant]
     Active Substance: METHIMAZOLE
     Indication: THYROID DISORDER
     Dosage: 20 MILLIGRAM, 1/2?0?0?0 (EVERY 2ND DAY)
     Route: 065
     Dates: end: 20190918
  10. SEDARISTON [HYPERICUM PERFORATUM EXTRACT;MELISSA OFFICINALIS EXTRACT;V [Concomitant]
     Indication: PRODUCT USED FOR UNKNOWN INDICATION
     Dosage: 20 DROPS (APPROX. 1?3 PM, AGAIN 1 TIME 20 DROPS ONCE AT NIGHT, AGAIN 2 TIMES 20 DROPS WHEN AWAKE)
     Route: 065
  11. SALT [Concomitant]
     Active Substance: SODIUM CHLORIDE
     Indication: PRODUCT USED FOR UNKNOWN INDICATION
     Dosage: 225 MILLIGRAM, TID
     Route: 065
  12. SALT [Concomitant]
     Active Substance: SODIUM CHLORIDE
     Dosage: 0.25 GRAM, BID
     Route: 065
  13. METRONIDAZOL ARISTO [Concomitant]
     Active Substance: METRONIDAZOLE
     Indication: PRODUCT USED FOR UNKNOWN INDICATION
     Dosage: 400 MILLIGRAM, BID
     Route: 065
  14. TILIDIN COMP [Concomitant]
     Active Substance: NALOXONE HYDROCHLORIDE\TILIDINE HYDROCHLORIDE
     Indication: PRODUCT USED FOR UNKNOWN INDICATION
     Dosage: UNK, 0?0?0?30
     Route: 065
  15. PILOMANN [Concomitant]
     Active Substance: PILOCARPINE HYDROCHLORIDE
     Indication: INTRAOCULAR PRESSURE INCREASED
     Dosage: 2 PERCENT, BID (EYE DROPS, BOTH SIDES) (APPROX. 5 PM ? 6 PM)
     Route: 065
  16. RAMIPRIL HYDROCHLOROTHIAZIDE RATIOPHARM [Concomitant]
     Indication: CARDIAC DISCOMFORT
     Dosage: 5MG/25MG, QD
     Route: 065
  17. NOVODIGAL (.BETA.?ACETYLDIGOXIN) [Concomitant]
     Active Substance: .BETA.-ACETYLDIGOXIN
     Indication: CARDIAC DISORDER
     Dosage: 0.2 MILLIGRAM, QD (SUNDAY AND WEDNESDAY NO TABLET)
     Route: 065
  18. FOLSAN [Concomitant]
     Active Substance: FOLIC ACID
     Indication: PRODUCT USED FOR UNKNOWN INDICATION
     Dosage: 5 MILLIGRAM, QD
     Route: 065
  19. AMOXICILLIN + CLAVULANIC ACID [Concomitant]
     Active Substance: AMOXICILLIN\CLAVULANIC ACID
     Indication: PRODUCT USED FOR UNKNOWN INDICATION
     Dosage: 875/125 MILLIGRAM, BID
     Route: 065
     Dates: end: 20190921
  20. VERAPAMIL [VERAPAMIL HYDROCHLORIDE] [Concomitant]
     Active Substance: VERAPAMIL HYDROCHLORIDE
     Indication: CARDIAC DISORDER
  21. DEKRISTOL [Concomitant]
     Active Substance: CHOLECALCIFEROL
     Indication: PRODUCT USED FOR UNKNOWN INDICATION
     Dosage: 1000 INTERNATIONAL UNIT, QD
     Route: 065
  22. POTASSIUM [Concomitant]
     Active Substance: POTASSIUM
     Dosage: 1 CAPSULE CONTENT (0.8 MILLIMOLE), BID
  23. METHIZOL [Concomitant]
     Active Substance: METHIMAZOLE
     Indication: PRODUCT USED FOR UNKNOWN INDICATION
     Dosage: 20 MILLIGRAM, QD
     Route: 065
  24. SPERSACARPIN [Concomitant]
     Indication: PRODUCT USED FOR UNKNOWN INDICATION
     Dosage: 20 MILLIGRAM PER MILLILITER, BID (ON BOTH SIDES)
     Route: 065
  25. TORASEMID AL [Concomitant]
     Active Substance: TORSEMIDE
     Dosage: 20 MILLIGRAM (WHEN WEIGHT MORE THAN CA. 50 KG WITHOUT CLOTHES OR MORE THAN 52 KG WITH CLOTHES)
  26. VERAPAMIL [VERAPAMIL HYDROCHLORIDE] [Concomitant]
     Active Substance: VERAPAMIL HYDROCHLORIDE
     Indication: ARRHYTHMIA
     Dosage: 240 MILLIGRAM, BID
     Route: 065
  27. DELIX [RAMIPRIL] [Concomitant]
     Active Substance: RAMIPRIL
     Indication: PRODUCT USED FOR UNKNOWN INDICATION
     Dosage: 5 MILLIGRAM, QD
     Route: 065
  28. TILIDIN [Concomitant]
     Active Substance: NALOXONE HYDROCHLORIDE\TILIDINE HYDROCHLORIDE
     Indication: PRODUCT USED FOR UNKNOWN INDICATION
     Dosage: 50 MILLIGRAM; 4 MILLIGRAM
     Route: 065
  29. TORASEMID [Concomitant]
     Active Substance: TORSEMIDE
     Indication: PRODUCT USED FOR UNKNOWN INDICATION
     Dosage: 10 MILLIGRAM, 1?1/2?0?0
     Route: 065

REACTIONS (4)
  - Pulmonary arterial hypertension [Recovering/Resolving]
  - Pneumonia [Recovering/Resolving]
  - Cardiac failure [Recovering/Resolving]
  - Hyponatraemia [Recovering/Resolving]

NARRATIVE: CASE EVENT DATE: 2019
